FAERS Safety Report 13080864 (Version 1)
Quarter: 2017Q1

REPORT INFORMATION
  Report Type: Spontaneous
  Country: IT (occurrence: IT)
  Receive Date: 20170103
  Receipt Date: 20170103
  Transmission Date: 20170428
  Serious: Yes (Other)
  Sender: FDA-Public Use
  Company Number: PHHY2016IT180960

PATIENT
  Age: 45 Year
  Sex: Female

DRUGS (2)
  1. PROLIA [Suspect]
     Active Substance: DENOSUMAB
     Indication: PRODUCT USED FOR UNKNOWN INDICATION
     Dosage: 120 MG, CYCLIC
     Route: 065
     Dates: start: 20150819, end: 20161024
  2. ZOMETA [Suspect]
     Active Substance: ZOLEDRONIC ACID
     Indication: PRODUCT USED FOR UNKNOWN INDICATION
     Dosage: 4 MG, CYCLIC
     Route: 042
     Dates: start: 20131208, end: 20150204

REACTIONS (2)
  - Exposed bone in jaw [Unknown]
  - Osteonecrosis of jaw [Unknown]

NARRATIVE: CASE EVENT DATE: 20160901
